FAERS Safety Report 7875879-1 (Version None)
Quarter: 2011Q4

REPORT INFORMATION
  Report Type: 
  Country: None (occurrence: None)
  Receive Date: 20111031
  Receipt Date: 20111021
  Transmission Date: 20120403
  Serious: Yes (Hospitalization)
  Sender: FDA-Public Use
  Company Number: SE-ASTRAZENECA-2011SE63644

PATIENT
  Age: 80 Year
  Sex: Male

DRUGS (9)
  1. MOVIPREP [Concomitant]
     Route: 048
  2. MADOPARK [Concomitant]
  3. ELIGARD [Concomitant]
  4. ACETAMINOPHEN [Concomitant]
     Route: 048
  5. SALURES [Concomitant]
  6. MADOPARK DEPOT [Concomitant]
     Route: 048
  7. ALLOPURINOL [Concomitant]
  8. FELODIPINE [Suspect]
     Indication: ESSENTIAL HYPERTENSION
     Route: 048
     Dates: end: 20110527
  9. TOVIAZ [Concomitant]
     Route: 048

REACTIONS (1)
  - ORTHOSTATIC HYPOTENSION [None]
